FAERS Safety Report 9116406 (Version 2)
Quarter: 2013Q1

REPORT INFORMATION
  Report Type: Spontaneous
  Country: US (occurrence: US)
  Receive Date: 20130225
  Receipt Date: 20130318
  Transmission Date: 20140127
  Serious: Yes (Other)
  Sender: FDA-Public Use
  Company Number: US-PFIZER INC-2013068196

PATIENT
  Age: 58 Year
  Sex: Female
  Weight: 80.27 kg

DRUGS (2)
  1. LYRICA [Suspect]
     Indication: SCIATICA
     Dosage: 50 MG, 2X/DAY
     Route: 048
     Dates: start: 20130218, end: 20130219
  2. ADVIL [Concomitant]
     Dosage: 2 DF, 1X/DAY

REACTIONS (16)
  - Intervertebral disc protrusion [Recovering/Resolving]
  - Activities of daily living impaired [Recovering/Resolving]
  - Dysgeusia [Recovering/Resolving]
  - Thinking abnormal [Recovering/Resolving]
  - Feeling abnormal [Recovering/Resolving]
  - Fatigue [Recovering/Resolving]
  - Eye disorder [Recovering/Resolving]
  - Coordination abnormal [Recovering/Resolving]
  - Sedation [Recovering/Resolving]
  - Pyrexia [Recovering/Resolving]
  - Speech disorder [Recovering/Resolving]
  - Chills [Recovering/Resolving]
  - Feeling hot [Recovering/Resolving]
  - Nightmare [Recovering/Resolving]
  - Lip dry [Recovering/Resolving]
  - Asthenia [Recovering/Resolving]
